FAERS Safety Report 12202093 (Version 1)
Quarter: 2016Q1

REPORT INFORMATION
  Report Type: Report from Study
  Country: BR (occurrence: BR)
  Receive Date: 20160322
  Receipt Date: 20160322
  Transmission Date: 20160526
  Serious: Yes (Hospitalization)
  Sender: FDA-Public Use
  Company Number: PHHY2016BR033409

PATIENT
  Age: 16 Year
  Sex: Male
  Weight: 72 kg

DRUGS (1)
  1. OMNITROPE [Suspect]
     Active Substance: SOMATROPIN
     Indication: METABOLIC DISORDER
     Dosage: 0.7 MG, QD
     Route: 058
     Dates: start: 201401

REACTIONS (2)
  - Dengue fever [Recovered/Resolved]
  - Application site pain [Unknown]

NARRATIVE: CASE EVENT DATE: 201601
